FAERS Safety Report 16081182 (Version 1)
Quarter: 2019Q1

REPORT INFORMATION
  Report Type: Spontaneous
  Country: US (occurrence: US)
  Receive Date: 20190316
  Receipt Date: 20190316
  Transmission Date: 20190418
  Serious: No
  Sender: FDA-Public Use
  Company Number: US-TEVA-2019-US-1016080

PATIENT
  Age: 18 Year
  Sex: Female

DRUGS (1)
  1. VENLAFAXINE CAPSULE [Suspect]
     Active Substance: VENLAFAXINE HYDROCHLORIDE
     Indication: ANXIETY
     Dosage: 75 MILLIGRAM DAILY;
     Route: 065

REACTIONS (2)
  - Abdominal pain upper [Unknown]
  - Abdominal pain [Unknown]
